FAERS Safety Report 7551508-1 (Version None)
Quarter: 2011Q2

REPORT INFORMATION
  Report Type: 
  Country: None (occurrence: None)
  Receive Date: 20110616
  Receipt Date: 20110606
  Transmission Date: 20111010
  Serious: Yes (Death, Other)
  Sender: FDA-Public Use
  Company Number: KR-JNJFOC-20110605031

PATIENT
  Age: 43 Year
  Sex: Female

DRUGS (2)
  1. AMPHOTERICIN B [Suspect]
     Indication: BRONCHOPULMONARY ASPERGILLOSIS
     Route: 065
  2. ITRACONAZOLE [Suspect]
     Indication: FUNGAL SKIN INFECTION
     Route: 065

REACTIONS (2)
  - DRUG EFFECT DECREASED [None]
  - BRONCHOPULMONARY ASPERGILLOSIS [None]
